FAERS Safety Report 7391311-9 (Version None)
Quarter: 2011Q2

REPORT INFORMATION
  Report Type: 
  Country: None (occurrence: None)
  Receive Date: 20110404
  Receipt Date: 20100618
  Transmission Date: 20111010
  Serious: No
  Sender: FDA-Public Use
  Company Number: US-PFIZER INC-2010077269

PATIENT
  Sex: Male
  Weight: 90.703 kg

DRUGS (7)
  1. METFORMIN [Concomitant]
     Indication: DIABETES MELLITUS
     Dosage: 500 MG, 2X/DAY
  2. VITAMIN D [Concomitant]
     Dosage: 50000 IU, UNK
  3. LISINOPRIL [Concomitant]
     Indication: HYPERTENSION
     Dosage: 10 MG, 2X/DAY
  4. ZOLPIDEM [Concomitant]
     Indication: POOR QUALITY SLEEP
     Dosage: 5 MG, AS NEEDED, ONE AT BED TIME
  5. INDOMETHACIN [Concomitant]
     Dosage: UNK
  6. SERTRALINE HYDROCHLORIDE [Suspect]
     Dosage: UNK
     Route: 048
  7. PRAVASTATIN [Concomitant]
     Indication: BLOOD CHOLESTEROL INCREASED
     Dosage: 40 MG, 1X/DAY

REACTIONS (1)
  - DRUG SCREEN POSITIVE [None]
